FAERS Safety Report 6558368-6 (Version None)
Quarter: 2010Q1

REPORT INFORMATION
  Report Type: 
  Country: None (occurrence: None)
  Receive Date: 20100129
  Receipt Date: 20100119
  Transmission Date: 20100710
  Serious: Yes (Hospitalization, Disabling, Other)
  Sender: FDA-Public Use
  Company Number: JP-MERCK-0912USA03042

PATIENT
  Age: 70 Year
  Sex: Male
  Weight: 27 kg

DRUGS (3)
  1. DECADRON [Suspect]
     Indication: PROSTATE CANCER
     Route: 048
     Dates: start: 20090703
  2. PARIET [Concomitant]
     Indication: PROPHYLAXIS AGAINST GASTROINTESTINAL ULCER
     Route: 048
     Dates: start: 20090303
  3. GABAPEN [Concomitant]
     Route: 048
     Dates: start: 20090601

REACTIONS (5)
  - MUSCLE ATROPHY [None]
  - MUSCULAR WEAKNESS [None]
  - PARKINSON'S DISEASE [None]
  - RESTLESS LEGS SYNDROME [None]
  - SLEEP DISORDER [None]
